FAERS Safety Report 5003127-9 (Version None)
Quarter: 2006Q2

REPORT INFORMATION
  Report Type: 
  Country: None (occurrence: None)
  Receive Date: 20060516
  Receipt Date: 20060320
  Transmission Date: 20061013
  Serious: Yes (Other)
  Sender: FDA-Public Use
  Company Number: US-ROCHE-441347

PATIENT
  Age: 41 Year
  Sex: Male

DRUGS (7)
  1. PEGASYS [Suspect]
     Dosage: STARTED WITH A DOSE HIGHER THAN 90 MCG.
     Route: 065
  2. PEGASYS [Suspect]
     Dosage: REDUCED DOSE.
     Route: 065
     Dates: start: 20051202
  3. PEGASYS [Suspect]
     Route: 065
  4. COPEGUS [Suspect]
     Route: 048
     Dates: start: 20051202
  5. ELAVIL [Concomitant]
     Indication: INSOMNIA
  6. KEFLEX [Concomitant]
     Indication: LUNG INFECTION
  7. CIPRO [Concomitant]
     Indication: LUNG INFECTION

REACTIONS (4)
  - BLOOD PRESSURE DIASTOLIC INCREASED [None]
  - CARPAL TUNNEL SYNDROME [None]
  - LUNG INFECTION [None]
  - THYROIDECTOMY [None]
